FAERS Safety Report 12530075 (Version 2)
Quarter: 2016Q3

REPORT INFORMATION
  Report Type: Report from Study
  Country: CN (occurrence: CN)
  Receive Date: 20160706
  Receipt Date: 20160722
  Transmission Date: 20161109
  Serious: Yes (Other)
  Sender: FDA-Public Use
  Company Number: CN-ROCHE-1788982

PATIENT

DRUGS (4)
  1. HEPARIN CALCIUM [Suspect]
     Active Substance: HEPARIN CALCIUM
     Indication: ACUTE MYOCARDIAL INFARCTION
     Dosage: 800-1000U/H FOR 48  HOURS
     Route: 065
  2. HEPARIN CALCIUM [Suspect]
     Active Substance: HEPARIN CALCIUM
     Route: 058
  3. ALTEPLASE [Suspect]
     Active Substance: ALTEPLASE
     Indication: ACUTE MYOCARDIAL INFARCTION
     Dosage: AS FIRST DOSE THROUGH VENOUS PUSHING INJECTION IN 1-3MIN
     Route: 040
  4. ALTEPLASE [Suspect]
     Active Substance: ALTEPLASE
     Dosage: IN 90 MIN
     Route: 041

REACTIONS (1)
  - Acute myocardial infarction [Unknown]
